FAERS Safety Report 11390781 (Version 3)
Quarter: 2015Q3

REPORT INFORMATION
  Report Type: Report from Study
  Country: TW (occurrence: TW)
  Receive Date: 20150818
  Receipt Date: 20150924
  Transmission Date: 20151125
  Serious: Yes (Life-Threatening, Other)
  Sender: FDA-Public Use
  Company Number: TW-ABBVIE-15K-153-1445454-00

PATIENT
  Age: 77 Year
  Sex: Female
  Weight: 58 kg

DRUGS (1)
  1. HUMIRA [Suspect]
     Active Substance: ADALIMUMAB
     Indication: RHEUMATOID ARTHRITIS
     Route: 058
     Dates: start: 20140415, end: 20150725

REACTIONS (3)
  - Loss of consciousness [Not Recovered/Not Resolved]
  - Road traffic accident [Not Recovered/Not Resolved]
  - Brain operation [Not Recovered/Not Resolved]

NARRATIVE: CASE EVENT DATE: 20150727
